FAERS Safety Report 5286483-6 (Version None)
Quarter: 2007Q1

REPORT INFORMATION
  Report Type: 
  Country: None (occurrence: None)
  Receive Date: 20070116
  Receipt Date: 20061025
  Transmission Date: 20070707
  Serious: No
  Sender: FDA-Public Use
  Company Number: 2006SP003824

PATIENT
  Age: 85 Year
  Sex: Male
  Weight: 90.7194 kg

DRUGS (11)
  1. LUNESTA [Suspect]
     Indication: INSOMNIA
     Dosage: 3 MG;HS;ORAL
     Route: 048
     Dates: start: 20060501
  2. SIMVASTATIN [Concomitant]
  3. COREG [Concomitant]
  4. PRILOSEC [Concomitant]
  5. SOTALOL HYDROCHLORIDE [Concomitant]
  6. DOXEPIN HCL [Concomitant]
  7. PEPCID [Concomitant]
  8. PROZAC [Concomitant]
  9. ASPIRIN [Concomitant]
  10. GLIPIZIDE [Concomitant]
  11. COZAAR [Concomitant]

REACTIONS (2)
  - DRUG INEFFECTIVE [None]
  - INITIAL INSOMNIA [None]
